FAERS Safety Report 5890530-8 (Version None)
Quarter: 2008Q3

REPORT INFORMATION
  Report Type: 
  Country: None (occurrence: None)
  Receive Date: 20080922
  Receipt Date: 20080910
  Transmission Date: 20090109
  Serious: Yes (Hospitalization)
  Sender: FDA-Public Use
  Company Number: US-WYE-H05933008

PATIENT
  Sex: Female
  Weight: 48.12 kg

DRUGS (14)
  1. PRISTIQ [Suspect]
     Indication: DEPRESSION
     Route: 048
     Dates: start: 20080909, end: 20080909
  2. SYNTHROID [Concomitant]
     Indication: HYPOTHYROIDISM
     Dosage: UNKNOWN
  3. DIOVAN [Concomitant]
  4. CLONIDINE [Concomitant]
  5. CARVEDILOL [Concomitant]
  6. AMBIEN CR [Concomitant]
     Indication: INSOMNIA
     Dosage: UNKNOWN
  7. EVISTA [Concomitant]
  8. ACETYL SALICYLIC ACID COMPOUND TAB [Concomitant]
  9. CENTRUM SILVER [Concomitant]
     Dosage: UNKNOWN
  10. BONIVA [Concomitant]
     Dosage: MONTHLY
  11. VITAMIN D [Concomitant]
     Dosage: UNKNOWN
  12. DOCUSATE [Concomitant]
     Dosage: UNKNOWN
  13. MIRTAZAPINE [Concomitant]
     Indication: DEPRESSION
     Dosage: PRN
  14. PANTOPRAZOLE SODIUM [Concomitant]
     Indication: DYSPEPSIA

REACTIONS (2)
  - FALL [None]
  - TRANSIENT ISCHAEMIC ATTACK [None]
